FAERS Safety Report 25657377 (Version 1)
Quarter: 2025Q3

REPORT INFORMATION
  Report Type: Spontaneous
  Country: US (occurrence: US)
  Receive Date: 20250808
  Receipt Date: 20250808
  Transmission Date: 20251020
  Serious: No
  Sender: CSL BEHRING
  Company Number: US-BEH-2025215059

PATIENT
  Sex: Female

DRUGS (2)
  1. HIZENTRA [Suspect]
     Active Substance: HUMAN IMMUNOGLOBULIN G
     Indication: Immunodeficiency common variable
     Dosage: 20 G, QW
     Route: 058
     Dates: start: 202410
  2. HIZENTRA [Suspect]
     Active Substance: HUMAN IMMUNOGLOBULIN G
     Indication: Immunodeficiency common variable
     Dosage: 20 G, QW
     Route: 058
     Dates: start: 202410

REACTIONS (4)
  - Infusion site mass [Unknown]
  - Scar [Unknown]
  - Nasopharyngitis [Recovering/Resolving]
  - Infusion site induration [Not Recovered/Not Resolved]
